FAERS Safety Report 13923887 (Version 4)
Quarter: 2018Q1

REPORT INFORMATION
  Report Type: Spontaneous
  Country: US (occurrence: US)
  Receive Date: 20170831
  Receipt Date: 20180314
  Transmission Date: 20180508
  Serious: No
  Sender: FDA-Public Use
  Company Number: US-PFIZER INC-2017377096

PATIENT
  Age: 78 Year
  Sex: Female

DRUGS (1)
  1. IBRANCE [Suspect]
     Active Substance: PALBOCICLIB
     Indication: BREAST CANCER FEMALE
     Dosage: 125 MG, CYCLIC, (ONCE DAILY FOR 21 DAYS IN A ROW FOLLOWED BY 7 DAYS OFF)
     Route: 048
     Dates: start: 201708, end: 201712

REACTIONS (6)
  - Vomiting [Recovering/Resolving]
  - Dysgeusia [Recovering/Resolving]
  - Abdominal discomfort [Recovering/Resolving]
  - Condition aggravated [Recovering/Resolving]
  - Stomatitis [Recovering/Resolving]
  - Nausea [Recovering/Resolving]

NARRATIVE: CASE EVENT DATE: 2017
